FAERS Safety Report 16051905 (Version 7)
Quarter: 2020Q3

REPORT INFORMATION
  Report Type: Report from Study
  Country: IT (occurrence: IT)
  Receive Date: 20190308
  Receipt Date: 20200831
  Transmission Date: 20201102
  Serious: Yes (Other)
  Sender: FDA-Public Use
  Company Number: IT-PFIZER INC-2019101899

PATIENT
  Age: 19 Year
  Sex: Female

DRUGS (7)
  1. LYSODREN [Suspect]
     Active Substance: MITOTANE
     Dosage: 1500 MG, DAILY (3 DF DAILY)
     Route: 048
  2. LYSODREN [Suspect]
     Active Substance: MITOTANE
     Dosage: 2000 MG, DAILY (4 DF DAILY)
     Dates: start: 201801
  3. ENANTONE [LEUPRORELIN] [Concomitant]
     Active Substance: LEUPROLIDE ACETATE
     Dosage: UNK
     Dates: start: 20181119
  4. CISPLATIN. [Suspect]
     Active Substance: CISPLATIN
     Indication: ADRENAL GLAND CANCER
     Dosage: 1 DF, CYCLIC
     Route: 042
     Dates: start: 20180301
  5. LYSODREN [Suspect]
     Active Substance: MITOTANE
     Indication: ADRENAL GLAND CANCER
     Dosage: 3000 MG, DAILY (6 DFS DAILY)
     Route: 048
     Dates: start: 20180110
  6. DOXORUBICIN HCL [Suspect]
     Active Substance: DOXORUBICIN HYDROCHLORIDE
     Indication: ADRENAL GLAND CANCER
     Dosage: 1 DF, CYCLIC
     Route: 042
     Dates: start: 20180301
  7. ETOPOSIDE. [Suspect]
     Active Substance: ETOPOSIDE
     Indication: ADRENAL GLAND CANCER
     Dosage: 1 DF, CYCLIC
     Route: 042
     Dates: start: 20180301

REACTIONS (9)
  - Alopecia [Recovered/Resolved]
  - Hypertransaminasaemia [Recovered/Resolved]
  - Syncope [Recovered/Resolved]
  - Diarrhoea [Recovered/Resolved]
  - Vomiting [Recovered/Resolved]
  - Dizziness [Recovered/Resolved]
  - Nausea [Recovered/Resolved]
  - Decreased appetite [Recovered/Resolved]
  - Asthenia [Recovering/Resolving]

NARRATIVE: CASE EVENT DATE: 20181119
